FAERS Safety Report 8890507 (Version 2)
Quarter: 2013Q4

REPORT INFORMATION
  Report Type: Spontaneous
  Country: US (occurrence: US)
  Receive Date: 20121107
  Receipt Date: 20131126
  Transmission Date: 20140711
  Serious: Yes (Hospitalization)
  Sender: FDA-Public Use
  Company Number: US-009507513-1210USA014534

PATIENT
  Age: 24 Year
  Sex: Male
  Weight: 86.17 kg

DRUGS (1)
  1. SINGULAIR [Suspect]
     Indication: PRODUCT USED FOR UNKNOWN INDICATION
     Dosage: 10 MG, TAB
     Route: 048

REACTIONS (19)
  - Abdominal distension [Unknown]
  - Constipation [Unknown]
  - Decreased appetite [Unknown]
  - Pain [Unknown]
  - Anxiety [Unknown]
  - Arthralgia [Unknown]
  - Back pain [Unknown]
  - Change of bowel habit [Unknown]
  - Chest pain [Unknown]
  - Cold sweat [Unknown]
  - Decreased activity [Unknown]
  - Drug ineffective [Unknown]
  - Dyspnoea [Unknown]
  - Fatigue [Unknown]
  - Hyperhidrosis [Unknown]
  - Panic attack [Unknown]
  - Rash [Unknown]
  - Syncope [Unknown]
  - Abdominal distension [Unknown]
